FAERS Safety Report 4607539-4 (Version None)
Quarter: 2005Q1

REPORT INFORMATION
  Report Type: 
  Country: None (occurrence: None)
  Receive Date: 20050310
  Receipt Date: 20050301
  Transmission Date: 20050727
  Serious: Yes (Hospitalization)
  Sender: FDA-Public Use
  Company Number: 2005-03-0018

PATIENT
  Sex: Female

DRUGS (1)
  1. TEMODAL [Suspect]
     Indication: BRAIN NEOPLASM
     Dosage: 250MG BID X3D

REACTIONS (2)
  - BONE MARROW DEPRESSION [None]
  - PURPURA [None]
